FAERS Safety Report 18270786 (Version 2)
Quarter: 2020Q3

REPORT INFORMATION
  Report Type: Spontaneous
  Country: US (occurrence: US)
  Receive Date: 20200915
  Receipt Date: 20200929
  Transmission Date: 20201103
  Serious: Yes (Other)
  Sender: FDA-Public Use
  Company Number: US-TEVA-2020-US-1827388

PATIENT
  Age: 48 Year
  Sex: Female

DRUGS (9)
  1. PREDNISONE. [Concomitant]
     Active Substance: PREDNISONE
     Indication: HEAVY CHAIN DISEASE
     Route: 065
  2. DEXAMETHASONE. [Concomitant]
     Active Substance: DEXAMETHASONE
     Indication: HEAVY CHAIN DISEASE
     Route: 065
  3. RITUXIMAB. [Concomitant]
     Active Substance: RITUXIMAB
     Dosage: 3 CYCLES OF R?CVP
     Route: 065
  4. RITUXIMAB. [Concomitant]
     Active Substance: RITUXIMAB
     Indication: HEAVY CHAIN DISEASE
     Dosage: 1 CYCLE OF R?CHOP
     Route: 065
  5. CYCLOPHOSPHAMIDE. [Concomitant]
     Active Substance: CYCLOPHOSPHAMIDE
     Dosage: 3 CYCLES OF R?CVP
     Route: 065
  6. DOXORUBICIN [Concomitant]
     Active Substance: DOXORUBICIN
     Indication: HEAVY CHAIN DISEASE
     Route: 065
  7. VINCRISTINE [Suspect]
     Active Substance: VINCRISTINE
     Indication: HEAVY CHAIN DISEASE
     Dosage: 1 CYCLE OF R?CHOP
     Route: 065
  8. VINCRISTINE [Suspect]
     Active Substance: VINCRISTINE
     Dosage: 3 CYCLES OF R?CVP
     Route: 065
  9. CYCLOPHOSPHAMIDE. [Concomitant]
     Active Substance: CYCLOPHOSPHAMIDE
     Indication: HEAVY CHAIN DISEASE
     Dosage: 1 CYCLE OF R?CHOP
     Route: 065

REACTIONS (1)
  - Neuropathy peripheral [Unknown]
